FAERS Safety Report 8277833-7 (Version None)
Quarter: 2012Q2

REPORT INFORMATION
  Report Type: 
  Country: None (occurrence: None)
  Receive Date: 20120412
  Receipt Date: 20120403
  Transmission Date: 20120825
  Serious: Yes (Other)
  Sender: FDA-Public Use
  Company Number: US-MYLANLABS-2012S1002239

PATIENT
  Age: 20 Year
  Sex: Female

DRUGS (3)
  1. AMNESTEEM [Suspect]
     Dates: end: 20120119
  2. ORAL CONTRACEPTIVE NOS [Concomitant]
     Indication: CONTRACEPTION
     Route: 048
  3. CLARAVIS [Suspect]
     Dates: start: 20111205

REACTIONS (2)
  - MATERNAL EXPOSURE DURING PREGNANCY [None]
  - HEADACHE [None]
